FAERS Safety Report 10362638 (Version 1)
Quarter: 2014Q3

REPORT INFORMATION
  Report Type: Spontaneous
  Country: GB (occurrence: None)
  Receive Date: 20140730
  Receipt Date: 20140730
  Transmission Date: 20150326
  Serious: Yes (Death, Other)
  Sender: FDA-Public Use
  Company Number: 2010004229

PATIENT
  Age: 61 Year
  Sex: Female

DRUGS (1)
  1. ERLOTINIB HCL [Suspect]
     Active Substance: ERLOTINIB HYDROCHLORIDE
     Indication: NON-SMALL CELL LUNG CANCER
     Dosage: UNK, ONCE DAILY , ORAL  04/22/2010 TO 07/22/2010 THERAPY DATES
     Route: 048
     Dates: start: 20100422, end: 20100722

REACTIONS (2)
  - Malignant neoplasm progression [None]
  - Non-small cell lung cancer [None]

NARRATIVE: CASE EVENT DATE: 20100724
